FAERS Safety Report 26046374 (Version 1)
Quarter: 2025Q4

REPORT INFORMATION
  Report Type: Spontaneous
  Country: JP (occurrence: JP)
  Receive Date: 20251114
  Receipt Date: 20251114
  Transmission Date: 20260117
  Serious: Yes (Death)
  Sender: MERCK SHARP & DOHME LLC
  Company Number: JP-009507513-2349598

PATIENT
  Age: 55 Year
  Sex: Female

DRUGS (4)
  1. KEYTRUDA [Suspect]
     Active Substance: PEMBROLIZUMAB
     Indication: Uterine cancer
     Dosage: ADMINISTERED AT WEEK 0, 4, 8, 12, 16, 16, 19; FOR 7 COURSES
  2. LENVIMA [Suspect]
     Active Substance: LENVATINIB
     Indication: Uterine cancer
     Dosage: 10 MG FROM WEEK 1 TO WEEK 2, 8 MG FROM WEEK 5 TO WEEK 15, 8 MG FROM WEEK 18 TO WEEK 24, THEN (WIT...
  3. LENVIMA [Suspect]
     Active Substance: LENVATINIB
     Indication: Uterine cancer
     Dosage: 10 MG FROM WEEK 1 TO WEEK 2, 8 MG FROM WEEK 5 TO WEEK 15, 8 MG FROM WEEK 18 TO WEEK 24, THEN (WIT...
  4. LENVIMA [Suspect]
     Active Substance: LENVATINIB
     Indication: Uterine cancer
     Dosage: 10 MG FROM WEEK 1 TO WEEK 2, 8 MG FROM WEEK 5 TO WEEK 15, 8 MG FROM WEEK 18 TO WEEK 24, THEN (WIT...

REACTIONS (3)
  - Malignant neoplasm progression [Fatal]
  - Therapy partial responder [Unknown]
  - Inappropriate schedule of product administration [Unknown]
